FAERS Safety Report 9226360 (Version 1)
Quarter: 2013Q2

REPORT INFORMATION
  Report Type: Spontaneous
  Country: US (occurrence: US)
  Receive Date: 20130411
  Receipt Date: 20130411
  Transmission Date: 20140414
  Serious: Yes (Life-Threatening)
  Sender: FDA-Public Use
  Company Number: US-TARO-2013P1004601

PATIENT
  Sex: 0

DRUGS (1)
  1. WARFARIN [Suspect]

REACTIONS (3)
  - International normalised ratio increased [Unknown]
  - Haemorrhage [Unknown]
  - Product substitution issue [None]
